FAERS Safety Report 16159778 (Version 2)
Quarter: 2019Q2

REPORT INFORMATION
  Report Type: Spontaneous
  Country: JP (occurrence: JP)
  Receive Date: 20190404
  Receipt Date: 20190412
  Transmission Date: 20190711
  Serious: Yes (Death)
  Sender: FDA-Public Use
  Company Number: JP-ELI_LILLY_AND_COMPANY-JP201904002706

PATIENT
  Age: 60 Year
  Sex: Male

DRUGS (2)
  1. FLUOROURACIL. [Concomitant]
     Active Substance: FLUOROURACIL
     Indication: TONGUE CANCER METASTATIC
     Dosage: UNK UNK, UNKNOWN
     Route: 065
  2. ERBITUX [Suspect]
     Active Substance: CETUXIMAB
     Indication: TONGUE CANCER METASTATIC
     Dosage: UNK UNK, UNKNOWN
     Route: 041

REACTIONS (2)
  - Malignant neoplasm progression [Fatal]
  - Pneumonia [Fatal]
